FAERS Safety Report 5981085-8 (Version None)
Quarter: 2008Q4

REPORT INFORMATION
  Report Type: 
  Country: None (occurrence: None)
  Receive Date: 20081205
  Receipt Date: 20081202
  Transmission Date: 20090506
  Serious: Yes (Death)
  Sender: FDA-Public Use
  Company Number: CN-ABBOTT-08P-035-0490831-00

PATIENT
  Sex: Female
  Weight: 38 kg

DRUGS (3)
  1. KALETRA [Suspect]
     Indication: ACQUIRED IMMUNODEFICIENCY SYNDROME
     Dosage: 400/100 MG
     Dates: start: 20080728, end: 20081123
  2. LAMIVUDINE [Concomitant]
     Indication: ACQUIRED IMMUNODEFICIENCY SYNDROME
     Route: 048
     Dates: start: 20080828, end: 20081123
  3. TENOFOVIR [Concomitant]
     Indication: ACQUIRED IMMUNODEFICIENCY SYNDROME
     Route: 048
     Dates: start: 20080725, end: 20081123

REACTIONS (3)
  - ANAEMIA [None]
  - HYPOPROTEINAEMIA [None]
  - LUNG INFECTION [None]
